FAERS Safety Report 5256911-0 (Version None)
Quarter: 2007Q1

REPORT INFORMATION
  Report Type: 
  Country: None (occurrence: None)
  Receive Date: 20070307
  Receipt Date: 20070228
  Transmission Date: 20070707
  Serious: Yes (Other)
  Sender: FDA-Public Use
  Company Number: PHBS2006DE15415

PATIENT
  Age: 79 Year
  Sex: Male

DRUGS (1)
  1. ZOMETA [Suspect]
     Indication: PROSTATE CANCER
     Dates: start: 20030401, end: 20041101

REACTIONS (5)
  - ENDODONTIC PROCEDURE [None]
  - GENERAL ANAESTHESIA [None]
  - LOCAL ANAESTHESIA [None]
  - OSTEONECROSIS [None]
  - TOOTH EXTRACTION [None]
